FAERS Safety Report 6413227-4 (Version None)
Quarter: 2009Q4

REPORT INFORMATION
  Report Type: 
  Country: None (occurrence: None)
  Receive Date: 20091026
  Receipt Date: 20091015
  Transmission Date: 20100525
  Serious: Yes (Hospitalization)
  Sender: FDA-Public Use
  Company Number: US-JNJFOC-20091005553

PATIENT
  Sex: Female
  Weight: 72.58 kg

DRUGS (6)
  1. REMICADE [Suspect]
     Indication: CROHN'S DISEASE
     Route: 042
     Dates: start: 20090301
  2. ULTRAM [Concomitant]
     Indication: PAIN
  3. NEURONTIN [Concomitant]
     Indication: PAIN
     Dosage: 4-5 YEARS
  4. ASACOL [Concomitant]
     Indication: CROHN'S DISEASE
  5. MERCAPTOPURINE [Concomitant]
     Indication: CROHN'S DISEASE
  6. PREDNISONE [Concomitant]
     Indication: CROHN'S DISEASE
     Dosage: OFF AND ON FOR LAST 2 YEARS

REACTIONS (4)
  - ADVERSE DRUG REACTION [None]
  - BONE PAIN [None]
  - HYSTERECTOMY [None]
  - SWELLING [None]
